FAERS Safety Report 7111934-1 (Version None)
Quarter: 2010Q4

REPORT INFORMATION
  Report Type: 
  Country: None (occurrence: None)
  Receive Date: 20101119
  Receipt Date: 20101117
  Transmission Date: 20110411
  Serious: Yes (Other)
  Sender: FDA-Public Use
  Company Number: US-ASTRAZENECA-2007UW18895

PATIENT
  Age: 602 Month
  Sex: Male
  Weight: 79.4 kg

DRUGS (34)
  1. SEROQUEL [Suspect]
     Indication: PARANOIA
     Dosage: 4  2 DAY, 8 TABS
     Route: 048
     Dates: start: 19970101
  2. SEROQUEL [Suspect]
     Indication: HALLUCINATION, AUDITORY
     Dosage: 4  2 DAY, 8 TABS
     Route: 048
     Dates: start: 19970101
  3. SEROQUEL [Suspect]
     Indication: SCHIZOPHRENIA
     Dosage: 4  2 DAY, 8 TABS
     Route: 048
     Dates: start: 19970101
  4. SEROQUEL [Suspect]
     Indication: BIPOLAR DISORDER
     Dosage: 4  2 DAY, 8 TABS
     Route: 048
     Dates: start: 19970101
  5. SEROQUEL [Suspect]
     Indication: DEPRESSION
     Dosage: 4  2 DAY, 8 TABS
     Route: 048
     Dates: start: 19970101
  6. SEROQUEL [Suspect]
     Route: 048
     Dates: start: 20030209
  7. SEROQUEL [Suspect]
     Route: 048
     Dates: start: 20030209
  8. SEROQUEL [Suspect]
     Route: 048
     Dates: start: 20030209
  9. SEROQUEL [Suspect]
     Route: 048
     Dates: start: 20030209
  10. SEROQUEL [Suspect]
     Route: 048
     Dates: start: 20030209
  11. SEROQUEL [Suspect]
     Route: 048
     Dates: end: 20090105
  12. SEROQUEL [Suspect]
     Route: 048
     Dates: end: 20090105
  13. SEROQUEL [Suspect]
     Route: 048
     Dates: end: 20090105
  14. SEROQUEL [Suspect]
     Route: 048
     Dates: end: 20090105
  15. SEROQUEL [Suspect]
     Route: 048
     Dates: end: 20090105
  16. SEROQUEL [Suspect]
     Dosage: 300-1800 MG
     Route: 048
     Dates: start: 19990601, end: 20070101
  17. SEROQUEL [Suspect]
     Dosage: 300-1800 MG
     Route: 048
     Dates: start: 19990601, end: 20070101
  18. SEROQUEL [Suspect]
     Dosage: 300-1800 MG
     Route: 048
     Dates: start: 19990601, end: 20070101
  19. SEROQUEL [Suspect]
     Dosage: 300-1800 MG
     Route: 048
     Dates: start: 19990601, end: 20070101
  20. SEROQUEL [Suspect]
     Dosage: 300-1800 MG
     Route: 048
     Dates: start: 19990601, end: 20070101
  21. RANITIDINE [Concomitant]
     Dates: start: 20030118
  22. LEVOXYL [Concomitant]
     Indication: THYROID DISORDER
     Dates: start: 19850101
  23. ATENOLOL [Concomitant]
     Dates: start: 20040113
  24. REGLAN [Concomitant]
     Dates: start: 20040113
  25. DEPAKOTE [Concomitant]
     Indication: BIPOLAR I DISORDER
     Dates: start: 19970101
  26. REMERON [Concomitant]
     Indication: DEPRESSION
     Dates: start: 19970101
  27. LOTENSIN [Concomitant]
     Indication: BLOOD PRESSURE
     Dates: start: 19980101
  28. RESTORIL [Concomitant]
     Indication: SLEEP DISORDER
     Dates: start: 19970101
  29. BUSPAR [Concomitant]
     Indication: ANXIETY
     Dates: start: 19970101
  30. RISPERDAL [Concomitant]
     Indication: BIPOLAR DISORDER
     Dosage: 3 MG 2 TAB AT EVERY NIGHT
  31. ABILIFY [Concomitant]
  32. HALDOL [Concomitant]
     Dates: start: 19800101
  33. THORAZINE [Concomitant]
     Dates: start: 19800101
  34. VYTORIN [Concomitant]
     Dates: start: 20090801

REACTIONS (12)
  - CATARACT [None]
  - DIABETES MELLITUS [None]
  - DIABETES MELLITUS INADEQUATE CONTROL [None]
  - DIABETIC NEPHROPATHY [None]
  - DIABETIC NEUROPATHY [None]
  - DIABETIC VASCULAR DISORDER [None]
  - ERECTILE DYSFUNCTION [None]
  - FEELING ABNORMAL [None]
  - HYPERGLYCAEMIA [None]
  - RENAL FAILURE [None]
  - RENAL FAILURE CHRONIC [None]
  - TYPE 2 DIABETES MELLITUS [None]
